FAERS Safety Report 16391572 (Version 1)
Quarter: 2019Q2

REPORT INFORMATION
  Report Type: Report from Study
  Country: IT (occurrence: IT)
  Receive Date: 20190605
  Receipt Date: 20190605
  Transmission Date: 20190711
  Serious: Yes (Other)
  Sender: FDA-Public Use
  Company Number: IT-TEVA-2019-IT-1058171

PATIENT
  Age: 71 Year
  Sex: Male

DRUGS (8)
  1. TRESIBA [Concomitant]
     Active Substance: INSULIN DEGLUDEC
  2. EUTIROX 50 MICROGRAMMI COMPRESSE [Concomitant]
     Active Substance: LEVOTHYROXINE SODIUM
  3. METOPROLOLO [Concomitant]
     Dosage: 1 DOSAGE FORMS DAILY;
  4. TICLOPIDINA [Suspect]
     Active Substance: TICLOPIDINE
     Indication: THROMBOSIS PROPHYLAXIS
     Dosage: 1 DOSAGE FORMS DAILY;
     Route: 048
     Dates: start: 20180408, end: 20190408
  5. XELEVIA 50 MG FILM-COATED TABLETS [Concomitant]
  6. LUVION 50 MG COMPRESSE [Concomitant]
     Active Substance: CANRENONE
     Dosage: .5 DOSAGE FORMS DAILY;
  7. LASIX [Concomitant]
     Active Substance: FUROSEMIDE
     Dosage: 1 DOSAGE FORMS DAILY;
  8. TRIATEC [Concomitant]
     Dosage: 2 DOSAGE FORMS DAILY;

REACTIONS (1)
  - Gastrointestinal haemorrhage [Not Recovered/Not Resolved]

NARRATIVE: CASE EVENT DATE: 20190408
